FAERS Safety Report 12154595 (Version 12)
Quarter: 2020Q3

REPORT INFORMATION
  Report Type: Report from Study
  Country: CA (occurrence: CA)
  Receive Date: 20160307
  Receipt Date: 20200820
  Transmission Date: 20201102
  Serious: Yes (Hospitalization, Other)
  Sender: FDA-Public Use
  Company Number: PHHY2016CA026139

PATIENT
  Sex: Male

DRUGS (3)
  1. SANDOSTATIN LAR DEPOT [Suspect]
     Active Substance: OCTREOTIDE ACETATE
  2. SANDOSTATIN LAR DEPOT [Suspect]
     Active Substance: OCTREOTIDE ACETATE
     Indication: DESMOID TUMOUR
     Dosage: 30 MG, QMO (EVERY 4 WEEKS)
     Route: 030
     Dates: start: 20150910
  3. SANDOSTATIN LAR DEPOT [Suspect]
     Active Substance: OCTREOTIDE ACETATE

REACTIONS (11)
  - Tumour compression [Unknown]
  - Malignant neoplasm progression [Unknown]
  - Fistula discharge [Recovering/Resolving]
  - Desmoid tumour [Unknown]
  - Abdominal mass [Unknown]
  - Pelvic mass [Unknown]
  - Infection [Unknown]
  - Weight decreased [Unknown]
  - Adenomatous polyposis coli [Recovering/Resolving]
  - Product use in unapproved indication [Unknown]
  - Hydronephrosis [Unknown]

NARRATIVE: CASE EVENT DATE: 2017
